FAERS Safety Report 7828062-X (Version None)
Quarter: 2011Q4

REPORT INFORMATION
  Report Type: 
  Country: None (occurrence: None)
  Receive Date: 20111020
  Receipt Date: 20111012
  Transmission Date: 20120403
  Serious: Yes (Hospitalization)
  Sender: FDA-Public Use
  Company Number: FR-GLAXOSMITHKLINE-B0756503A

PATIENT
  Age: 61 Year
  Sex: Male

DRUGS (3)
  1. BUSULFAN [Suspect]
     Indication: ACUTE MYELOID LEUKAEMIA
     Dosage: .8MGK FOUR TIMES PER DAY
     Route: 065
     Dates: start: 20090115, end: 20090119
  2. NO THERAPY [Suspect]
     Indication: ACUTE MYELOID LEUKAEMIA
  3. MELPHALAN HYDROCHLORIDE [Suspect]
     Indication: ACUTE MYELOID LEUKAEMIA
     Route: 065
     Dates: start: 20090120, end: 20090120

REACTIONS (1)
  - BRONCHOPNEUMONIA [None]
